FAERS Safety Report 7805340-1 (Version None)
Quarter: 2011Q4

REPORT INFORMATION
  Report Type: 
  Country: None (occurrence: None)
  Receive Date: 20111010
  Receipt Date: 20110929
  Transmission Date: 20120403
  Serious: Yes (Other)
  Sender: FDA-Public Use
  Company Number: CA-ASTRAZENECA-2011SE59046

PATIENT
  Age: 71 Year
  Sex: Female

DRUGS (6)
  1. ATACAND HCT [Suspect]
     Route: 048
     Dates: start: 20080801
  2. ATENOLOL [Concomitant]
  3. AMLODIPINE [Concomitant]
  4. TYLENOL-500 [Concomitant]
  5. DIAZEPAM [Concomitant]
  6. CRESTOR [Suspect]
     Route: 048

REACTIONS (3)
  - MEDICATION RESIDUE [None]
  - DYSPEPSIA [None]
  - HYPERTENSION [None]
